FAERS Safety Report 9157498 (Version 1)
Quarter: 2013Q1

REPORT INFORMATION
  Report Type: Spontaneous
  Country: US (occurrence: None)
  Receive Date: 20130214
  Receipt Date: 20130214
  Transmission Date: 20140127
  Serious: Yes (Death)
  Sender: FDA-Public Use
  Company Number: 2013020075

PATIENT
  Age: 54 Year
  Sex: Female

DRUGS (2)
  1. CARISOPRODOL (CARISPRODOL) [Suspect]
     Route: 048
  2. HYDROCODONE W/ACETAMINOPHEN [Suspect]

REACTIONS (1)
  - Death [None]
